FAERS Safety Report 7772724-X (Version None)
Quarter: 2011Q3

REPORT INFORMATION
  Report Type: 
  Country: None (occurrence: None)
  Receive Date: 20110922
  Receipt Date: 20110512
  Transmission Date: 20111222
  Serious: No
  Sender: FDA-Public Use
  Company Number: US-ASTRAZENECA-2011SE28923

PATIENT
  Age: 38 Year
  Sex: Female
  Weight: 117.9 kg

DRUGS (1)
  1. SEROQUEL [Suspect]
     Route: 048

REACTIONS (4)
  - INSOMNIA [None]
  - HALLUCINATION [None]
  - DEPRESSION [None]
  - DRUG DOSE OMISSION [None]
